FAERS Safety Report 16786916 (Version 2)
Quarter: 2019Q3

REPORT INFORMATION
  Report Type: Spontaneous
  Country: US (occurrence: US)
  Receive Date: 20190909
  Receipt Date: 20190927
  Transmission Date: 20191005
  Serious: Yes (Other)
  Sender: FDA-Public Use
  Company Number: US-MALLINCKRODT-T201906121

PATIENT
  Age: 57 Year
  Sex: Female

DRUGS (1)
  1. H.P. ACTHAR [Suspect]
     Active Substance: CORTICOTROPIN
     Indication: RHEUMATOID ARTHRITIS
     Dosage: 80 UNITS (1 ML), EVERY 72 HOURS
     Route: 058
     Dates: start: 201908

REACTIONS (4)
  - Fall [Unknown]
  - Appetite disorder [Unknown]
  - Foot fracture [Unknown]
  - Weight abnormal [Unknown]

NARRATIVE: CASE EVENT DATE: 2019
